FAERS Safety Report 20840714 (Version 1)
Quarter: 2022Q2

REPORT INFORMATION
  Report Type: Spontaneous
  Country: IN (occurrence: IN)
  Receive Date: 20220517
  Receipt Date: 20220517
  Transmission Date: 20220720
  Serious: Yes (Other)
  Sender: FDA-Public Use
  Company Number: IN-GLAXOSMITHKLINE-IN2022GSK075868

PATIENT

DRUGS (8)
  1. BUPROPION [Suspect]
     Active Substance: BUPROPION
     Indication: Major depression
     Dosage: 150 MG, 1D
  2. LEVODOPA [Concomitant]
     Active Substance: LEVODOPA
     Indication: On and off phenomenon
     Dosage: UNK
  3. CARBIDOPA [Concomitant]
     Active Substance: CARBIDOPA
     Indication: On and off phenomenon
     Dosage: UNK
  4. ENTACAPONE [Concomitant]
     Active Substance: ENTACAPONE
     Indication: On and off phenomenon
     Dosage: UNK
  5. ROPINIROLE [Concomitant]
     Active Substance: ROPINIROLE
     Indication: On and off phenomenon
     Dosage: UNK
  6. SALT [Concomitant]
     Active Substance: SODIUM CHLORIDE
     Indication: Hyponatraemia
     Route: 048
  7. VENLAFAXINE [Concomitant]
     Active Substance: VENLAFAXINE HYDROCHLORIDE
     Indication: Suicidal ideation
     Dosage: UNK
  8. SERTRALINE [Concomitant]
     Active Substance: SERTRALINE HYDROCHLORIDE
     Indication: Suicidal ideation
     Dosage: UNK

REACTIONS (11)
  - Dystonia [Recovered/Resolved]
  - Spasmodic dysphonia [Recovered/Resolved]
  - Dry mouth [Recovering/Resolving]
  - Dyskinesia [Recovering/Resolving]
  - Trismus [Recovered/Resolved]
  - Risus sardonicus [Recovering/Resolving]
  - Dysphagia [Recovering/Resolving]
  - Torticollis [Recovered/Resolved]
  - Paraesthesia oral [Recovering/Resolving]
  - Macroglossia [Recovering/Resolving]
  - Aphasia [Recovering/Resolving]
